FAERS Safety Report 8271743-7 (Version None)
Quarter: 2012Q1

REPORT INFORMATION
  Report Type: 
  Country: None (occurrence: None)
  Receive Date: 20120327
  Receipt Date: 20100318
  Transmission Date: 20120608
  Serious: Yes (Other)
  Sender: FDA-Public Use
  Company Number: PHEH2010US03188

PATIENT
  Age: 50 Year
  Sex: Female

DRUGS (1)
  1. GLEEVEC [Suspect]
     Indication: CHRONIC MYELOID LEUKAEMIA
     Dosage: 400 MG, QD, ORAL 300 MG, QD, ORAL 400 MG, QD, ORAL
     Route: 048

REACTIONS (3)
  - CHRONIC MYELOID LEUKAEMIA [None]
  - FATIGUE [None]
  - ASTHENIA [None]
